FAERS Safety Report 15481429 (Version 1)
Quarter: 2018Q4

REPORT INFORMATION
  Report Type: Spontaneous
  Country: FR (occurrence: FR)
  Receive Date: 20181010
  Receipt Date: 20181010
  Transmission Date: 20190205
  Serious: Yes (Other)
  Sender: FDA-Public Use
  Company Number: FR-AUROBINDO-AUR-APL-2018-049019

PATIENT
  Age: 49 Year
  Sex: Female

DRUGS (1)
  1. RISEDRONATE ARROW FILM-COATED TABLET 75MG [Suspect]
     Active Substance: RISEDRONATE SODIUM
     Indication: OSTEOPOROSIS
     Dosage: 75 DOSAGE FORM, IN TOTAL
     Route: 048
     Dates: start: 20180901

REACTIONS (4)
  - Bone pain [Recovered/Resolved]
  - Hot flush [Recovered/Resolved]
  - Abdominal distension [Recovered/Resolved]
  - Arthralgia [Recovered/Resolved]

NARRATIVE: CASE EVENT DATE: 20180901
